FAERS Safety Report 5273582-8 (Version None)
Quarter: 2007Q1

REPORT INFORMATION
  Report Type: 
  Country: None (occurrence: None)
  Receive Date: 20070321
  Receipt Date: 20070321
  Transmission Date: 20070707
  Serious: Yes (Life-Threatening, Other)
  Sender: FDA-Public Use
  Company Number: None

PATIENT
  Sex: Male
  Weight: 65.7716 kg

DRUGS (2)
  1. FLAGYL [Suspect]
     Indication: CROHN'S DISEASE
     Dosage: 500 MG  3 TIMES DAILY PO
     Route: 048
     Dates: start: 20060201, end: 20060204
  2. FLAGYL [Suspect]
     Indication: GIARDIASIS
     Dosage: 500 MG  3 TIMES DAILY PO
     Route: 048
     Dates: start: 20060201, end: 20060204

REACTIONS (4)
  - ANGIOEDEMA [None]
  - CROHN'S DISEASE [None]
  - DEHYDRATION [None]
  - DRUG HYPERSENSITIVITY [None]
